FAERS Safety Report 22384152 (Version 1)
Quarter: 2023Q2

REPORT INFORMATION
  Report Type: Other
  Country: IN (occurrence: None)
  Receive Date: 20230530
  Receipt Date: 20230530
  Transmission Date: 20230721
  Serious: Yes (Hospitalization)
  Sender: FDA-Public Use
  Company Number: IN-ROCHE-3188826

PATIENT
  Age: 61 Year
  Sex: Female

DRUGS (1)
  1. PHESGO [Suspect]
     Active Substance: HYALURONIDASE-ZZXF\PERTUZUMAB\TRASTUZUMAB
     Indication: Breast cancer
     Route: 058
     Dates: start: 20220924

REACTIONS (7)
  - Breast conserving surgery [Unknown]
  - Axillary lymphadenectomy [Unknown]
  - Off label use [Unknown]
  - Diarrhoea [Unknown]
  - Asthenia [Unknown]
  - Hyponatraemia [Unknown]
  - Gait inability [Unknown]

NARRATIVE: CASE EVENT DATE: 20230301
